FAERS Safety Report 4436452-0 (Version None)
Quarter: 2004Q3

REPORT INFORMATION
  Report Type: 
  Country: None (occurrence: None)
  Receive Date: 20040830
  Receipt Date: 20040517
  Transmission Date: 20050211
  Serious: No
  Sender: FDA-Public Use
  Company Number: US-BRISTOL-MYERS SQUIBB COMPANY-12589222

PATIENT
  Age: 29 Year
  Sex: Female
  Weight: 59 kg

DRUGS (4)
  1. ABILIFY [Suspect]
     Indication: SCHIZOAFFECTIVE DISORDER
     Dosage: INCREASED TO 20 MG/DAY AND PHYSICIAN IS INCREASING THE DOSE TH 30MG/DAY ^TONIGHT^.
     Route: 048
     Dates: start: 20030901
  2. ABILIFY [Suspect]
     Indication: DEPRESSION
     Dosage: INCREASED TO 20 MG/DAY AND PHYSICIAN IS INCREASING THE DOSE TH 30MG/DAY ^TONIGHT^.
     Route: 048
     Dates: start: 20030901
  3. ZYPREXA [Concomitant]
  4. PROZAC [Concomitant]

REACTIONS (1)
  - VOMITING [None]
